FAERS Safety Report 23337773 (Version 1)
Quarter: 2023Q4

REPORT INFORMATION
  Report Type: Spontaneous
  Country: US (occurrence: US)
  Receive Date: 20231226
  Receipt Date: 20231226
  Transmission Date: 20240110
  Serious: No
  Sender: FDA-Public Use
  Company Number: US-PFIZER INC-PV202300199370

PATIENT
  Sex: Female

DRUGS (3)
  1. OXBRYTA [Suspect]
     Active Substance: VOXELOTOR
     Dosage: 1 DF (ONE PILL FOR COUPLE OF DAYS)(1 PILL A DAY)
  2. OXBRYTA [Suspect]
     Active Substance: VOXELOTOR
     Dosage: 2 DF
  3. OXBRYTA [Suspect]
     Active Substance: VOXELOTOR
     Dosage: 3 DF

REACTIONS (1)
  - Off label use [Unknown]
